FAERS Safety Report 7298902-4 (Version None)
Quarter: 2011Q1

REPORT INFORMATION
  Report Type: 
  Country: None (occurrence: None)
  Receive Date: 20110217
  Receipt Date: 20110207
  Transmission Date: 20110831
  Serious: Yes (Hospitalization, Other)
  Sender: FDA-Public Use
  Company Number: PHHY2011US09737

PATIENT
  Sex: Female
  Weight: 59 kg

DRUGS (4)
  1. ENALAPRIL [Concomitant]
     Indication: HYPERTENSION
     Dosage: 20 MG, BID
     Route: 048
     Dates: start: 20100308
  2. HYDROXYUREA [Concomitant]
     Indication: SICCA SYNDROME
     Dosage: 1500 MG, DAILY
     Route: 048
     Dates: start: 20100510
  3. EXJADE [Suspect]
  4. PROCARDIA [Concomitant]
     Indication: HYPERTENSION
     Dosage: 10 MG, TID
     Route: 048
     Dates: start: 20110120

REACTIONS (1)
  - DEEP VEIN THROMBOSIS [None]
